FAERS Safety Report 9525365 (Version 1)
Quarter: 2013Q1

REPORT INFORMATION
  Report Type: Spontaneous
  Country: US (occurrence: None)
  Receive Date: 20130314
  Receipt Date: 20130314
  Transmission Date: 20140127
  Serious: No
  Sender: FDA-Public Use
  Company Number: 1212USA006588

PATIENT
  Age: 50 Year
  Sex: Male

DRUGS (5)
  1. VICTRELIS (BOCEPREVIR) CAPSULE [Suspect]
     Indication: HEPATITIS C
     Route: 048
     Dates: end: 2012
  2. PEGINTRON (PEGINTERFERON ALFA-2B) POWDER FOR INJECTION [Suspect]
     Indication: HEPATITIS C
  3. RIBAVIRIN (RIBAVIRIN) TABLET, 200 MG [Suspect]
     Indication: HEPATITIS C
  4. EPZICOM (ABACAVIR SULFATE, LAMIVUDINE) [Concomitant]
  5. VIREAD (TENOFOVIR DISOPROXIL FUMARATE) [Concomitant]

REACTIONS (2)
  - Vomiting [None]
  - Dysgeusia [None]
